FAERS Safety Report 7059502-4 (Version None)
Quarter: 2010Q4

REPORT INFORMATION
  Report Type: 
  Country: None (occurrence: None)
  Receive Date: 20101025
  Receipt Date: 20101022
  Transmission Date: 20110411
  Serious: Yes (Death)
  Sender: FDA-Public Use
  Company Number: US-ASTRAZENECA-2006UW28027

PATIENT
  Age: 28042 Day
  Sex: Female

DRUGS (13)
  1. SEROQUEL [Suspect]
     Indication: DEPRESSION
     Route: 048
     Dates: start: 20030609, end: 20030918
  2. SEROQUEL [Suspect]
     Route: 048
     Dates: start: 20030609, end: 20031001
  3. RISPERDAL [Suspect]
  4. ZYPREXA [Suspect]
     Indication: DEPRESSION
     Dosage: 2.5-5 MG
     Dates: end: 20020701
  5. ZYPREXA [Suspect]
     Dates: start: 20020101, end: 20030101
  6. ZYPREXA [Suspect]
     Dates: start: 20020101, end: 20030101
  7. ABILIFY [Concomitant]
  8. CLOZARIL [Concomitant]
  9. HALDOL [Concomitant]
  10. NAVANE [Concomitant]
  11. SOLIAN [Concomitant]
  12. PAXIL [Concomitant]
     Dates: start: 20020101
  13. EFFEXOR XR [Concomitant]
     Dates: start: 20030101

REACTIONS (3)
  - ARTERIOSCLEROSIS [None]
  - CARDIAC FAILURE CONGESTIVE [None]
  - DIABETES MELLITUS [None]
